FAERS Safety Report 24804365 (Version 1)
Quarter: 2025Q1

REPORT INFORMATION
  Report Type: Spontaneous
  Country: US (occurrence: None)
  Receive Date: 20250102
  Receipt Date: 20250102
  Transmission Date: 20250409
  Serious: Yes (Death)
  Sender: FDA-CTU
  Company Number: None

PATIENT
  Age: 72 Year
  Sex: Female

DRUGS (1)
  1. PIRFENIDONE [Suspect]
     Active Substance: PIRFENIDONE
     Indication: Idiopathic pulmonary fibrosis
     Dosage: 801MG QD ORAL
     Route: 048
     Dates: start: 20230321, end: 20241121

REACTIONS (5)
  - Suicide attempt [None]
  - Hypoxia [None]
  - Chronic obstructive pulmonary disease [None]
  - Pathogen resistance [None]
  - Urinary tract infection [None]

NARRATIVE: CASE EVENT DATE: 20241121
